FAERS Safety Report 6422478-4 (Version None)
Quarter: 2009Q4

REPORT INFORMATION
  Report Type: 
  Country: None (occurrence: None)
  Receive Date: 20091030
  Receipt Date: 20091022
  Transmission Date: 20100525
  Serious: Yes (Hospitalization)
  Sender: FDA-Public Use
  Company Number: FR-GENENTECH-292804

PATIENT

DRUGS (5)
  1. BEVACIZUMAB [Suspect]
     Indication: COLORECTAL CANCER METASTATIC
     Dosage: 370 MG, UNK
     Dates: start: 20090622
  2. IRINOTECAN HCL [Suspect]
     Indication: COLORECTAL CANCER METASTATIC
     Dosage: 486 MG, UNK
     Dates: start: 20090622
  3. FLUOROURACIL [Suspect]
     Indication: COLORECTAL CANCER METASTATIC
     Dosage: 750 MG, UNK
     Route: 040
     Dates: start: 20090622
  4. FLUOROURACIL [Suspect]
     Dosage: 4490 MG, UNK
     Route: 041
     Dates: start: 20090622
  5. FOLINIC ACID [Suspect]
     Indication: COLORECTAL CANCER METASTATIC
     Dosage: 374 MG, UNK
     Dates: start: 20090622

REACTIONS (2)
  - COLITIS ISCHAEMIC [None]
  - MEGACOLON [None]
